FAERS Safety Report 25814595 (Version 1)
Quarter: 2025Q3

REPORT INFORMATION
  Report Type: Spontaneous
  Country: US (occurrence: US)
  Receive Date: 20250917
  Receipt Date: 20250917
  Transmission Date: 20251020
  Serious: No
  Sender: SANOFI AVENTIS
  Company Number: US-SA-2025SA276851

PATIENT
  Sex: Female

DRUGS (13)
  1. DUPIXENT [Suspect]
     Active Substance: DUPILUMAB
     Indication: Pemphigoid
     Dosage: 300 MG, QOW
     Route: 058
  2. DUPIXENT [Suspect]
     Active Substance: DUPILUMAB
     Indication: Dermatitis
  3. AVEENO [Concomitant]
     Active Substance: DIMETHICONE\HOMOSALATE\OCTINOXATE\OCTISALATE\TITANIUM DIOXIDE
  4. TRIAMCINOLONE ACETONIDE [Concomitant]
     Active Substance: TRIAMCINOLONE ACETONIDE
  5. HYDROCORTISONE [Concomitant]
     Active Substance: HYDROCORTISONE
  6. LEVOFLOXACIN [Concomitant]
     Active Substance: LEVOFLOXACIN
  7. CLEAR EYES COMPLETE 7 SYMPTOM RELIEF [Concomitant]
     Active Substance: HYPROMELLOSES\NAPHAZOLINE HYDROCHLORIDE\POLYSORBATE 80\ZINC SULFATE
  8. ATORVASTATIN CALCIUM [Concomitant]
     Active Substance: ATORVASTATIN CALCIUM
  9. HUMALOG [Concomitant]
     Active Substance: INSULIN LISPRO
  10. PREDNISONE [Concomitant]
     Active Substance: PREDNISONE
  11. MYCOPHENOLATE MOFETIL [Concomitant]
     Active Substance: MYCOPHENOLATE MOFETIL
  12. NIFEDIPINE [Concomitant]
     Active Substance: NIFEDIPINE
  13. LISINOPRIL [Concomitant]
     Active Substance: LISINOPRIL

REACTIONS (2)
  - Conjunctivitis [Unknown]
  - Product use in unapproved indication [Unknown]
